FAERS Safety Report 5822882-9 (Version None)
Quarter: 2008Q3

REPORT INFORMATION
  Report Type: 
  Country: None (occurrence: None)
  Receive Date: 20080724
  Receipt Date: 20080724
  Transmission Date: 20090109
  Serious: Yes (Life-Threatening, Other)
  Sender: FDA-Public Use
  Company Number: None

PATIENT
  Age: 31 Year
  Sex: Female
  Weight: 102.0593 kg

DRUGS (2)
  1. ASMANEX TWISTHALER [Suspect]
     Indication: ASTHMA
     Dosage: 1 PUFF 2 X DAILY ORAL
     Route: 048
     Dates: start: 20070901, end: 20080601
  2. ASTELIN [Suspect]
     Indication: NASAL DISORDER
     Dosage: 1 PUFF EACH NOSTRIL 2 X DAILY NOSE
     Route: 045
     Dates: start: 20070901, end: 20080601

REACTIONS (4)
  - COUGH [None]
  - DRY THROAT [None]
  - DYSMENORRHOEA [None]
  - MENORRHAGIA [None]
